FAERS Safety Report 12346501 (Version 1)
Quarter: 2016Q2

REPORT INFORMATION
  Report Type: Spontaneous
  Country: US (occurrence: US)
  Receive Date: 20160426
  Receipt Date: 20160426
  Transmission Date: 20160815
  Serious: Yes (Hospitalization)
  Sender: FDA-Public Use
  Company Number: US-MALLINCKRODT-T201601346

PATIENT
  Age: 14 Year
  Sex: Male

DRUGS (1)
  1. METHADOSE [Suspect]
     Active Substance: METHADONE HYDROCHLORIDE

REACTIONS (4)
  - Encephalitis [Unknown]
  - Respiratory depression [Recovered/Resolved]
  - Multiple organ dysfunction syndrome [Unknown]
  - Overdose [Recovered/Resolved]
